FAERS Safety Report 14704450 (Version 2)
Quarter: 2018Q2

REPORT INFORMATION
  Report Type: Spontaneous
  Country: US (occurrence: US)
  Receive Date: 20180402
  Receipt Date: 20180404
  Transmission Date: 20180711
  Serious: No
  Sender: FDA-Public Use
  Company Number: US-PFIZER INC-2018130180

PATIENT
  Age: 71 Year
  Sex: Male

DRUGS (1)
  1. CELECOXIB. [Suspect]
     Active Substance: CELECOXIB
     Dosage: 200 MG, 1 TABLET DAILY

REACTIONS (4)
  - Hypoaesthesia [Unknown]
  - Limb discomfort [Unknown]
  - Intentional product use issue [Unknown]
  - Gait disturbance [Unknown]
